FAERS Safety Report 8977595 (Version 1)
Quarter: 2012Q4

REPORT INFORMATION
  Report Type: 
  Country: US (occurrence: US)
  Receive Date: 20121220
  Receipt Date: 20121220
  Transmission Date: 20130627
  Serious: Yes (Death)
  Sender: FDA-Public Use
  Company Number: US-GLAXOSMITHKLINE-A1005704A

PATIENT
  Age: 64 Year
  Sex: Male

DRUGS (3)
  1. AVODART [Suspect]
     Indication: BLADDER CANCER
     Dosage: 1CAP At night
     Route: 048
  2. VENTOLIN [Concomitant]
     Indication: PRODUCT USED FOR UNKNOWN INDICATION
     Route: 065
  3. UNSPECIFIED MEDICATIONS [Concomitant]

REACTIONS (3)
  - Brain neoplasm malignant [Fatal]
  - Lung neoplasm malignant [Fatal]
  - Off label use [Unknown]
